FAERS Safety Report 8757188 (Version 2)
Quarter: 2012Q4

REPORT INFORMATION
  Report Type: 
  Country: US (occurrence: US)
  Receive Date: 20120828
  Receipt Date: 20121029
  Transmission Date: 20130627
  Serious: Yes (Death)
  Sender: FDA-Public Use
  Company Number: US-CELGENEUS-163-21880-12082614

PATIENT
  Age: 65 Year
  Sex: Female
  Weight: 50.39 kg

DRUGS (3)
  1. REVLIMID [Suspect]
     Indication: MDS
     Dosage: 20 Milligram
     Route: 048
     Dates: start: 20120427, end: 20120814
  2. DEPAKOTE [Concomitant]
     Indication: DRUG USE FOR UNKNOWN INDICATION
     Route: 065
  3. SINGULAIR [Concomitant]
     Indication: DRUG USE FOR UNKNOWN INDICATION
     Route: 065

REACTIONS (2)
  - Plasmacytoma [Fatal]
  - Myelodysplastic syndrome [Fatal]
